FAERS Safety Report 24840387 (Version 3)
Quarter: 2025Q1

REPORT INFORMATION
  Report Type: Report from Study
  Country: BE (occurrence: BE)
  Receive Date: 20250114
  Receipt Date: 20250318
  Transmission Date: 20250408
  Serious: Yes (Hospitalization, Other)
  Sender: CSL BEHRING
  Company Number: BE-BEH-2025191804

PATIENT
  Sex: Female

DRUGS (1)
  1. HIZENTRA [Suspect]
     Active Substance: HUMAN IMMUNOGLOBULIN G
     Indication: Secondary immunodeficiency
     Dosage: 6 G (30ML), QW
     Route: 058
     Dates: start: 20241024

REACTIONS (2)
  - Palliative care [Not Recovered/Not Resolved]
  - Plasma cell myeloma [Unknown]
